FAERS Safety Report 6648298-3 (Version None)
Quarter: 2010Q1

REPORT INFORMATION
  Report Type: 
  Country: None (occurrence: None)
  Receive Date: 20100318
  Receipt Date: 20100311
  Transmission Date: 20100710
  Serious: Yes (Life-Threatening, Hospitalization, Other)
  Sender: FDA-Public Use
  Company Number: 531982

PATIENT
  Age: 8 Year
  Sex: Female

DRUGS (2)
  1. GENTAMICIN SULFATE [Suspect]
     Indication: OSTEOMYELITIS
     Dosage: 180 MG, INTRAVENOUS
     Route: 042
     Dates: start: 20050103, end: 20050115
  2. FLOXACILLIN SODIUM [Concomitant]

REACTIONS (5)
  - ALANINE AMINOTRANSFERASE INCREASED [None]
  - CHRONIC FATIGUE SYNDROME [None]
  - FOOD INTOLERANCE [None]
  - RENAL FAILURE ACUTE [None]
  - RENAL TUBULAR NECROSIS [None]
